FAERS Safety Report 22149003 (Version 1)
Quarter: 2023Q1

REPORT INFORMATION
  Report Type: Spontaneous
  Country: US (occurrence: US)
  Receive Date: 20230328
  Receipt Date: 20230328
  Transmission Date: 20230417
  Serious: Yes (Other)
  Sender: FDA-Public Use
  Company Number: US-BATHANDBODY-2023-US-007184

PATIENT
  Age: 59 Year
  Sex: Female
  Weight: 81.65 kg

DRUGS (5)
  1. CUCUMBER MELON HAND SANITIZER [Suspect]
     Active Substance: ALCOHOL
     Indication: Personal hygiene
     Dosage: ACCIDENTAL OCULAR EXPOSURE
     Dates: start: 20230318, end: 20230318
  2. CELEXA [Concomitant]
     Active Substance: CITALOPRAM HYDROBROMIDE
  3. SEROQUEL [Concomitant]
     Active Substance: QUETIAPINE FUMARATE
  4. ATENOLOL [Concomitant]
     Active Substance: ATENOLOL
  5. DIAZEPAM [Concomitant]
     Active Substance: DIAZEPAM

REACTIONS (6)
  - Eye irritation [Recovered/Resolved]
  - Chemical burns of eye [Recovering/Resolving]
  - Ocular hyperaemia [Recovering/Resolving]
  - Inflammation [Recovering/Resolving]
  - Eye pain [Recovered/Resolved]
  - Blepharospasm [Recovered/Resolved]

NARRATIVE: CASE EVENT DATE: 20230318
